FAERS Safety Report 8132060-9 (Version None)
Quarter: 2012Q1

REPORT INFORMATION
  Report Type: 
  Country: None (occurrence: None)
  Receive Date: 20120131
  Receipt Date: 20120119
  Transmission Date: 20120608
  Serious: Yes (Hospitalization)
  Sender: FDA-Public Use
  Company Number: 2012030838

PATIENT
  Age: 7 Year

DRUGS (3)
  1. ASPIRIN [Concomitant]
  2. PRIVIGEN [Suspect]
     Indication: KAWASAKI'S DISEASE
     Dosage: 85 G QD, 85 G QD, INTRAVENOUS (NOT OTHERWISE SPECIFIED, INTRAVENOUS (NOT OTHERWISE SPECIFIED)
     Route: 042
     Dates: start: 20111231
  3. PRIVIGEN [Suspect]
     Indication: KAWASAKI'S DISEASE
     Dosage: 85 G QD, 85 G QD, INTRAVENOUS (NOT OTHERWISE SPECIFIED, INTRAVENOUS (NOT OTHERWISE SPECIFIED)
     Route: 042
     Dates: start: 20111229

REACTIONS (9)
  - THROMBOCYTOSIS [None]
  - PROTEINURIA [None]
  - ALBUMINURIA [None]
  - LEUKOCYTOSIS [None]
  - ASPARTATE AMINOTRANSFERASE INCREASED [None]
  - COOMBS DIRECT TEST POSITIVE [None]
  - HAEMATURIA [None]
  - HAEMOLYTIC ANAEMIA [None]
  - ALANINE AMINOTRANSFERASE INCREASED [None]
